FAERS Safety Report 6765183-7 (Version None)
Quarter: 2010Q2

REPORT INFORMATION
  Report Type: 
  Country: None (occurrence: None)
  Receive Date: 20100610
  Receipt Date: 20100610
  Transmission Date: 20101027
  Serious: Yes (Life-Threatening)
  Sender: FDA-Public Use
  Company Number: None

PATIENT
  Age: 76 Year
  Sex: Male
  Weight: 97.1 kg

DRUGS (7)
  1. LOVENOX [Suspect]
     Indication: THROMBOSIS PROPHYLAXIS
     Dosage: 40 MG QDAY SQ
     Route: 058
     Dates: start: 20100526, end: 20100531
  2. ZOFRAN [Concomitant]
  3. SENNA [Concomitant]
  4. FLEETS ENEMA [Concomitant]
  5. INHALERS [Concomitant]
  6. THEOPHYLLINE [Concomitant]
  7. MUCINEX ER [Concomitant]

REACTIONS (3)
  - INTRA-ABDOMINAL HAEMATOMA [None]
  - RECTAL TENESMUS [None]
  - UNRESPONSIVE TO STIMULI [None]
